FAERS Safety Report 10046868 (Version 2)
Quarter: 2014Q2

REPORT INFORMATION
  Report Type: Spontaneous
  Country: JP (occurrence: JP)
  Receive Date: 20140331
  Receipt Date: 20140410
  Transmission Date: 20141212
  Serious: Yes (Hospitalization)
  Sender: FDA-Public Use
  Company Number: JP-OTSUKA-JP-2014-12656

PATIENT
  Age: 79 Year
  Sex: Female
  Weight: 61.5 kg

DRUGS (13)
  1. PLETAAL [Suspect]
     Indication: PERIPHERAL ARTERIAL OCCLUSIVE DISEASE
     Dosage: 100 MG MILLIGRAM(S), BID
     Route: 048
     Dates: start: 20120416, end: 20140303
  2. PLETAAL [Suspect]
     Indication: SKIN ULCER
  3. AMARYL [Suspect]
     Indication: DIABETES MELLITUS
     Dosage: 1 MG MILLIGRAM(S), QD
     Route: 048
     Dates: start: 200412, end: 20140303
  4. PARIET [Suspect]
     Indication: DUODENAL ULCER HAEMORRHAGE
     Dosage: 10 MG MILLIGRAM(S), QD
     Route: 048
     Dates: start: 20091130, end: 20140303
  5. MAGNESIUM OXIDE [Concomitant]
     Dosage: UNK
     Route: 048
  6. KALLIKREIN [Concomitant]
     Dosage: UNK
     Route: 065
  7. FRANDOL [Concomitant]
     Dosage: UNK
     Route: 061
  8. JANUVIA [Concomitant]
     Dosage: 50 MG MILLIGRAM(S), DAILY DOSE
     Route: 048
  9. KOLANTYL [Concomitant]
     Dosage: 3 G GRAM(S), DAILY DOSE
     Route: 048
  10. BIOFERMIN [Concomitant]
     Dosage: 3 DF DOSAGE FORM, DAILY DOSE
     Route: 048
  11. SELBEX [Concomitant]
     Dosage: 150 MG MILLIGRAM(S), DAILY DOSE
     Route: 048
  12. MICARDIS [Concomitant]
     Dosage: 20 MG MILLIGRAM(S), DAILY DOSE
     Route: 048
  13. SEIBULE [Concomitant]
     Dosage: 150 MG MILLIGRAM(S), DAILY DOSE
     Route: 048

REACTIONS (1)
  - Thrombocytopenic purpura [Recovering/Resolving]
